FAERS Safety Report 8539090-3 (Version None)
Quarter: 2012Q3

REPORT INFORMATION
  Report Type: 
  Country: None (occurrence: None)
  Receive Date: 20120713
  Receipt Date: 20091124
  Transmission Date: 20120928
  Serious: Yes (Other)
  Sender: FDA-Public Use
  Company Number: 2009AP004716

PATIENT
  Age: 59 Year
  Sex: Female
  Weight: 71.1 kg

DRUGS (14)
  1. ATENOLOL [Suspect]
     Indication: HYPERTENSION
     Dosage: 50 MG, QD
  2. BROMOCRIPTINE MESYLATE [Suspect]
     Dosage: 5 MG
  3. SIMVASTATIN [Suspect]
     Indication: HYPERLIPIDAEMIA
     Dosage: 10 MG, QD
  4. VALPROIC ACID [Suspect]
     Indication: CONVULSION
     Dosage: 500;750 MG, QD
  5. RISPERIDONE [Suspect]
     Indication: PSYCHOTIC DISORDER
     Dosage: 2.5 MG, QD
  6. HYDROCHLOROTHIAZIDE [Suspect]
     Indication: HYPERTENSION
     Dosage: 50 MG, QD
  7. GLIPIZIDE [Suspect]
     Indication: DIABETES MELLITUS
     Dosage: 10 MG, QD
  8. CARBAMAZEPINE [Concomitant]
  9. BENAZEPRIL HYDROCHLORIDE [Suspect]
     Indication: HYPERTENSION
     Dosage: 60 MG, QD
  10. ASPIRIN [Suspect]
     Indication: CARDIOVASCULAR EVENT PROPHYLAXIS
     Dosage: 81 MG, QD
  11. LEVOTHYROXINE SODIUM [Suspect]
     Indication: HYPOTHYROIDISM
     Dosage: 25 MG, QD
  12. LACTULOSE [Suspect]
     Indication: CONSTIPATION
     Dosage: 30 ML, QD
  13. RANITIDINE HYDROCHLORIDE [Suspect]
     Dosage: 300 MG, QD
  14. NIACIN [Suspect]
     Indication: HYPERLIPIDAEMIA
     Dosage: 1500 MG, QD

REACTIONS (14)
  - TREMOR [None]
  - DRUG INTERACTION [None]
  - ABNORMAL BEHAVIOUR [None]
  - SCHIZOAFFECTIVE DISORDER [None]
  - HYPERGLYCAEMIA [None]
  - GRAND MAL CONVULSION [None]
  - PERSONALITY CHANGE [None]
  - CONFUSIONAL STATE [None]
  - HYPOTENSION [None]
  - URINARY INCONTINENCE [None]
  - LETHARGY [None]
  - TOXICITY TO VARIOUS AGENTS [None]
  - DIZZINESS [None]
  - INCOHERENT [None]
